FAERS Safety Report 23430489 (Version 1)
Quarter: 2024Q1

REPORT INFORMATION
  Report Type: Spontaneous
  Country: US (occurrence: US)
  Receive Date: 20240123
  Receipt Date: 20240123
  Transmission Date: 20240410
  Serious: Yes (Hospitalization, Other)
  Sender: FDA-Public Use
  Company Number: US-ORG100016242-2024000025

PATIENT

DRUGS (6)
  1. EXPAREL [Suspect]
     Active Substance: BUPIVACAINE
     Indication: Nerve block
     Dosage: 20 ML ADMIXED WITH 30 ML OF 0.25% BUPIVACAINE
     Route: 050
  2. BUPIVACAINE [Suspect]
     Active Substance: BUPIVACAINE
     Indication: Nerve block
     Dosage: 30 ML OF 0.25% BUPIVACAINE ADMIXED WITH 20 ML OF LIPOSOMAL?BUPIVACAINE
     Route: 050
  3. ACETAMINOPHEN [Concomitant]
     Active Substance: ACETAMINOPHEN
     Indication: Perioperative analgesia
     Dosage: 1000 MG - 1 H BEFORE SURGERY
     Route: 065
  4. GABAPENTIN [Concomitant]
     Active Substance: GABAPENTIN
     Indication: Perioperative analgesia
     Dosage: 100MG - 1 H BEFORE SURGERY
     Route: 065
  5. CEFAZOLIN [Concomitant]
     Active Substance: CEFAZOLIN
     Indication: Antibiotic prophylaxis
     Dosage: 2 G FOR{120 KG OR 3 G}120 KG
     Route: 065
  6. VANCOMYCIN [Concomitant]
     Active Substance: VANCOMYCIN
     Indication: Antibiotic prophylaxis
     Route: 065

REACTIONS (17)
  - Acute kidney injury [Unknown]
  - Acute coronary syndrome [Unknown]
  - Chylothorax [Unknown]
  - Empyema [Unknown]
  - Pleural effusion [Unknown]
  - Dysphonia [Unknown]
  - Social problem [Unknown]
  - Oliguria [Unknown]
  - Post procedural haemorrhage [Unknown]
  - Procedural pain [Unknown]
  - Atrial fibrillation [Unknown]
  - Hypoxia [Unknown]
  - Procedural nausea [Unknown]
  - Procedural vomiting [Unknown]
  - Fatigue [Unknown]
  - Confusional state [Unknown]
  - Off label use [Unknown]
